FAERS Safety Report 24642993 (Version 2)
Quarter: 2025Q3

REPORT INFORMATION
  Report Type: Report from Study
  Country: KR (occurrence: KR)
  Receive Date: 20241120
  Receipt Date: 20250803
  Transmission Date: 20251021
  Serious: Yes (Other)
  Sender: ALEXION PHARMACEUTICALS
  Company Number: KR-AstraZeneca-2023A228190

PATIENT
  Age: 68 Year
  Sex: Male
  Weight: 57 kg

DRUGS (25)
  1. DURVALUMAB [Suspect]
     Active Substance: DURVALUMAB
     Indication: Lung neoplasm malignant
  2. DURVALUMAB [Suspect]
     Active Substance: DURVALUMAB
  3. DURVALUMAB [Suspect]
     Active Substance: DURVALUMAB
  4. DURVALUMAB [Suspect]
     Active Substance: DURVALUMAB
  5. DURVALUMAB [Suspect]
     Active Substance: DURVALUMAB
  6. DURVALUMAB [Suspect]
     Active Substance: DURVALUMAB
  7. DURVALUMAB [Suspect]
     Active Substance: DURVALUMAB
  8. DURVALUMAB [Suspect]
     Active Substance: DURVALUMAB
  9. DURVALUMAB [Suspect]
     Active Substance: DURVALUMAB
  10. DURVALUMAB [Suspect]
     Active Substance: DURVALUMAB
  11. DURVALUMAB [Suspect]
     Active Substance: DURVALUMAB
  12. DURVALUMAB [Suspect]
     Active Substance: DURVALUMAB
  13. DURVALUMAB [Suspect]
     Active Substance: DURVALUMAB
  14. DURVALUMAB [Suspect]
     Active Substance: DURVALUMAB
  15. DURVALUMAB [Suspect]
     Active Substance: DURVALUMAB
  16. SODIUM ALGINATE [Concomitant]
     Active Substance: SODIUM ALGINATE
     Indication: Prophylaxis
     Route: 065
  17. Fotagel [Concomitant]
     Indication: Diarrhoea
     Route: 065
  18. CHOLINE ALFOSCERATE [Concomitant]
     Active Substance: CHOLINE ALFOSCERATE
     Route: 065
  19. Encover [Concomitant]
     Indication: Decreased appetite
     Route: 065
  20. HARNAL [Concomitant]
     Active Substance: TAMSULOSIN HYDROCHLORIDE
     Indication: Benign prostatic hyperplasia
  21. Alpium [Concomitant]
     Indication: Gastritis
  22. REBAMIPIDE [Concomitant]
     Active Substance: REBAMIPIDE
     Indication: Gastritis
  23. TRIMETAZIDINE DIHYDROCHLORIDE [Concomitant]
     Active Substance: TRIMETAZIDINE DIHYDROCHLORIDE
     Indication: Hypertension
  24. CRESTOR [Concomitant]
     Active Substance: ROSUVASTATIN CALCIUM
     Indication: Hyperlipidaemia
  25. XELODA [Concomitant]
     Active Substance: CAPECITABINE
     Indication: Rectal cancer

REACTIONS (1)
  - Infectious pleural effusion [Recovered/Resolved]

NARRATIVE: CASE EVENT DATE: 20220307
